FAERS Safety Report 13043324 (Version 1)
Quarter: 2016Q4

REPORT INFORMATION
  Report Type: Spontaneous
  Country: US (occurrence: US)
  Receive Date: 20161219
  Receipt Date: 20161219
  Transmission Date: 20170207
  Serious: Yes (Other)
  Sender: FDA-Public Use
  Company Number: US-BEH-2016076229

PATIENT
  Age: 29 Year
  Sex: Female

DRUGS (2)
  1. CARIMUNE NF [Suspect]
     Active Substance: HUMAN IMMUNOGLOBULIN G
     Indication: SYSTEMIC LUPUS ERYTHEMATOSUS
  2. CARIMUNE NF [Suspect]
     Active Substance: HUMAN IMMUNOGLOBULIN G
     Indication: DERMATOMYOSITIS
     Dosage: 24 G, UNK
     Route: 042
     Dates: start: 20161206, end: 20161210

REACTIONS (1)
  - Listeria test positive [Unknown]

NARRATIVE: CASE EVENT DATE: 20161210
